FAERS Safety Report 24293837 (Version 1)
Quarter: 2024Q3

REPORT INFORMATION
  Report Type: Spontaneous
  Country: US (occurrence: US)
  Receive Date: 20240906
  Receipt Date: 20240906
  Transmission Date: 20241017
  Serious: No
  Sender: DOMPE FARMACEUTICI
  Company Number: US-FARMAPROD-202403-0710

PATIENT
  Age: 70 Year
  Sex: Female
  Weight: 92.53 kg

DRUGS (38)
  1. OXERVATE [Suspect]
     Active Substance: CENEGERMIN-BKBJ
     Indication: Neurotrophic keratopathy
     Route: 047
     Dates: start: 20240209, end: 20240403
  2. OXERVATE [Suspect]
     Active Substance: CENEGERMIN-BKBJ
     Indication: Neurotrophic keratopathy
     Route: 047
     Dates: start: 20240502
  3. OXERVATE [Suspect]
     Active Substance: CENEGERMIN-BKBJ
  4. AMOXICILLIN [Concomitant]
     Active Substance: AMOXICILLIN
  5. BIOTENE NOS [Concomitant]
     Active Substance: UNSPECIFIED INGREDIENT
  6. ORAJEL [Concomitant]
     Active Substance: ALLANTOIN\BENZOCAINE\CAMPHOR (NATURAL)\DIMETHICONE\MENTHOL
  7. MOXIFLOXACIN [Concomitant]
     Active Substance: MOXIFLOXACIN
  8. TIMOLOL MALEATE [Concomitant]
     Active Substance: TIMOLOL MALEATE
  9. RESTASIS [Concomitant]
     Active Substance: CYCLOSPORINE
  10. LOTEMAX [Concomitant]
     Active Substance: LOTEPREDNOL ETABONATE
  11. GENTEAL MILD [Concomitant]
     Active Substance: HYPROMELLOSE 2910 (4000 MPA.S)
  12. THERATEARS [Concomitant]
     Active Substance: CARBOXYMETHYLCELLULOSE SODIUM
  13. LEVOCETIRIZINE DIHYDROCHLORIDE [Concomitant]
     Active Substance: LEVOCETIRIZINE DIHYDROCHLORIDE
  14. HERBALS\TURMERIC [Concomitant]
     Active Substance: HERBALS\TURMERIC
  15. PROBIOTICS NOS [Concomitant]
     Active Substance: PROBIOTICS NOS
  16. VITAMINS [Concomitant]
     Active Substance: VITAMINS
     Dosage: 50 PLUS
  17. XANAX [Concomitant]
     Active Substance: ALPRAZOLAM
  18. ESTRADIOL [Concomitant]
     Active Substance: ESTRADIOL
     Dosage: WITH APPLICATOR
  19. CETIRIZINE HYDROCHLORIDE [Concomitant]
     Active Substance: CETIRIZINE HYDROCHLORIDE
  20. MONTELUKAST SODIUM [Concomitant]
     Active Substance: MONTELUKAST\MONTELUKAST SODIUM
  21. TIMOLOL MALEATE [Concomitant]
     Active Substance: TIMOLOL MALEATE
  22. ASPIRIN [Concomitant]
     Active Substance: ASPIRIN
  23. NABUMETONE [Concomitant]
     Active Substance: NABUMETONE
  24. BUPROPION HYDROCHLORIDE [Concomitant]
     Active Substance: BUPROPION HYDROCHLORIDE
     Dosage: 12H
  25. OMEPRAZOLE [Concomitant]
     Active Substance: OMEPRAZOLE
  26. SIMVASTATIN [Concomitant]
     Active Substance: SIMVASTATIN
  27. TRIAMCINOLONE ACETONIDE [Concomitant]
     Active Substance: TRIAMCINOLONE ACETONIDE
  28. VENTOLIN HFA [Concomitant]
     Active Substance: ALBUTEROL SULFATE
     Dosage: HYDROFLUORALKANE AEROSOL WITH ADAPTER
  29. CARVEDILOL [Concomitant]
     Active Substance: CARVEDILOL
  30. DULOXETINE HYDROCHLORIDE [Concomitant]
     Active Substance: DULOXETINE HYDROCHLORIDE
  31. BACLOFEN [Concomitant]
     Active Substance: BACLOFEN
  32. SPIRONOLACTONE-HYDROCHLORITHIAZIDE [Concomitant]
     Dosage: 25 MG-25MG
  33. BUMETANIDE [Concomitant]
     Active Substance: BUMETANIDE
  34. ASTAXANTHIN [Concomitant]
     Active Substance: ASTAXANTHIN
  35. LUTEIN [Concomitant]
     Active Substance: LUTEIN
  36. HYDROCHLOROTHIAZIDE\LOSARTAN [Concomitant]
     Active Substance: HYDROCHLOROTHIAZIDE\LOSARTAN
  37. BEET ROOT-TART CHERRY [Concomitant]
  38. MACROBID [Concomitant]
     Active Substance: NITROFURANTOIN\NITROFURANTOIN MONOHYDRATE

REACTIONS (5)
  - Eye irritation [Unknown]
  - Urinary tract infection [Not Recovered/Not Resolved]
  - Ocular hyperaemia [Unknown]
  - Eye pain [Unknown]
  - Product dose omission issue [Not Recovered/Not Resolved]

NARRATIVE: CASE EVENT DATE: 20240301
